FAERS Safety Report 8804526 (Version 2)
Quarter: 2015Q1

REPORT INFORMATION
  Report Type: Report from Study
  Country: US (occurrence: US)
  Receive Date: 20120924
  Receipt Date: 20150312
  Transmission Date: 20150721
  Serious: Yes (Death, Other)
  Sender: FDA-Public Use
  Company Number: US-ROCHE-1104278

PATIENT
  Sex: Female

DRUGS (8)
  1. AVASTIN [Suspect]
     Active Substance: BEVACIZUMAB
     Indication: BRAIN NEOPLASM MALIGNANT
     Route: 042
     Dates: start: 200710
  2. ZOFRAN [Concomitant]
     Active Substance: ONDANSETRON HYDROCHLORIDE
     Route: 065
  3. VESICARE [Concomitant]
     Active Substance: SOLIFENACIN SUCCINATE
  4. TEMODAR [Concomitant]
     Active Substance: TEMOZOLOMIDE
     Route: 048
  5. DITROPAN [Concomitant]
     Active Substance: OXYBUTYNIN CHLORIDE
  6. COMPAZINE [Concomitant]
     Active Substance: PROCHLORPERAZINE MALEATE
  7. ETOPOSIDE. [Concomitant]
     Active Substance: ETOPOSIDE
     Route: 048
  8. SYNTHROID [Concomitant]
     Active Substance: LEVOTHYROXINE SODIUM
     Route: 065

REACTIONS (11)
  - Paranasal sinus hypersecretion [Unknown]
  - Diarrhoea [Unknown]
  - Off label use [Unknown]
  - Cytopenia [Unknown]
  - Urinary incontinence [Unknown]
  - Meningism [Unknown]
  - Neutropenia [Unknown]
  - Metastases to meninges [Unknown]
  - Death [Fatal]
  - Asthenia [Unknown]
  - Hypotonia [Unknown]

NARRATIVE: CASE EVENT DATE: 2008
